FAERS Safety Report 5810237-2 (Version None)
Quarter: 2008Q3

REPORT INFORMATION
  Report Type: 
  Country: None (occurrence: None)
  Receive Date: 20080715
  Receipt Date: 20080205
  Transmission Date: 20090109
  Serious: No
  Sender: FDA-Public Use
  Company Number: A0700576A

PATIENT
  Age: 36 Year
  Sex: Female

DRUGS (5)
  1. IMITREX [Suspect]
     Indication: MIGRAINE
     Dosage: 100MG VARIABLE DOSE
     Route: 048
  2. IMITREX [Suspect]
     Route: 058
  3. ZOLOFT [Concomitant]
  4. PROVENTIL [Concomitant]
  5. ASMACORT [Concomitant]

REACTIONS (2)
  - BALANCE DISORDER [None]
  - FEELING ABNORMAL [None]
